FAERS Safety Report 9287012 (Version 4)
Quarter: 2013Q3

REPORT INFORMATION
  Report Type: Spontaneous
  Country: FR (occurrence: FR)
  Receive Date: 20130513
  Receipt Date: 20130808
  Transmission Date: 20140515
  Serious: Yes (Hospitalization, Other)
  Sender: FDA-Public Use
  Company Number: FR-ABBOTT-13P-056-1087458-00

PATIENT
  Age: 46 Year
  Sex: Male
  Weight: 69 kg

DRUGS (2)
  1. HUMIRA [Suspect]
     Indication: COLITIS ULCERATIVE
     Route: 058
     Dates: start: 20100201, end: 20130506
  2. HUMIRA [Suspect]
     Indication: CROHN^S DISEASE

REACTIONS (9)
  - Hypotension [Recovered/Resolved]
  - Sense of oppression [Recovered/Resolved]
  - Abnormal behaviour [Recovered/Resolved]
  - Tremor [Recovered/Resolved]
  - Anaphylactic shock [Recovered/Resolved]
  - Erythema [Recovered/Resolved]
  - Influenza [Recovered/Resolved]
  - Influenza [Recovered/Resolved]
  - Influenza [Recovered/Resolved]
